FAERS Safety Report 5387681-3 (Version None)
Quarter: 2007Q3

REPORT INFORMATION
  Report Type: 
  Country: None (occurrence: None)
  Receive Date: 20070716
  Receipt Date: 20070709
  Transmission Date: 20080115
  Serious: Yes (Other)
  Sender: FDA-Public Use
  Company Number: AU-ASTRAZENECA-2007AP04153

PATIENT
  Age: 66 Year
  Sex: Male

DRUGS (3)
  1. TAMOXIFEN CITRATE [Suspect]
     Indication: BREAST CANCER
     Route: 048
     Dates: start: 20041001
  2. INDERAL [Concomitant]
     Indication: TREMOR
     Route: 048
  3. ASASANTIN [Concomitant]
     Indication: CEREBROVASCULAR ACCIDENT

REACTIONS (5)
  - CARDIAC FLUTTER [None]
  - CEREBROVASCULAR ACCIDENT [None]
  - FAMILIAL TREMOR [None]
  - FATIGUE [None]
  - INSOMNIA [None]
